FAERS Safety Report 23158352 (Version 1)
Quarter: 2023Q4

REPORT INFORMATION
  Report Type: Spontaneous
  Country: US (occurrence: US)
  Receive Date: 20231108
  Receipt Date: 20231108
  Transmission Date: 20240110
  Serious: Yes (Other)
  Sender: FDA-Public Use
  Company Number: US-AMNEAL PHARMACEUTICALS-2022-AMRX-03170

PATIENT
  Age: 23 Year
  Sex: Female

DRUGS (2)
  1. ISOTRETINOIN [Suspect]
     Active Substance: ISOTRETINOIN
     Indication: Product used for unknown indication
     Dosage: 30MG CAPSULE, BID
     Route: 065
     Dates: start: 20220830, end: 20221026
  2. ESCITALOPRAM [Suspect]
     Active Substance: ESCITALOPRAM OXALATE
     Indication: Product used for unknown indication
     Dosage: UNK
     Route: 065
     Dates: end: 202210

REACTIONS (3)
  - Exposure during pregnancy [Unknown]
  - Abortion spontaneous [Recovered/Resolved]
  - Chlamydial infection [Not Recovered/Not Resolved]

NARRATIVE: CASE EVENT DATE: 20221020
